FAERS Safety Report 10187349 (Version 2)
Quarter: 2014Q2

REPORT INFORMATION
  Report Type: Spontaneous
  Country: US (occurrence: US)
  Receive Date: 20140522
  Receipt Date: 20140530
  Transmission Date: 20141212
  Serious: No
  Sender: FDA-Public Use
  Company Number: US-PFIZER INC-2014137231

PATIENT
  Age: 48 Year
  Sex: Male
  Weight: 122.45 kg

DRUGS (8)
  1. CELEBREX [Suspect]
     Indication: ARTHRITIS
     Dosage: 200 MG, DAILY
  2. DICLOFENAC [Concomitant]
     Indication: PAIN
     Dosage: DAILY
  3. METHADONE [Concomitant]
     Indication: PAIN
     Dosage: 3X/DAY
  4. LISINOPRIL W/HYDROCHLOROTHIAZIDE [Concomitant]
     Indication: HYPERTENSION
     Dosage: DAILY
  5. TREXIMET [Concomitant]
     Indication: MIGRAINE
     Dosage: 2 DF, MONTHLY
  6. CYCLOBENZAPRINE [Concomitant]
     Indication: MUSCLE RELAXANT THERAPY
     Dosage: DAILY
  7. FLONASE [Concomitant]
     Indication: OBSTRUCTIVE AIRWAYS DISORDER
     Dosage: DAILY
  8. ALBUTEROL [Concomitant]
     Indication: ASTHMA
     Dosage: AS INHALER DAILY

REACTIONS (1)
  - Accident [Unknown]
